FAERS Safety Report 11220382 (Version 1)
Quarter: 2015Q2

REPORT INFORMATION
  Report Type: Spontaneous
  Country: US (occurrence: None)
  Receive Date: 20150625
  Receipt Date: 20150625
  Transmission Date: 20150821
  Serious: No
  Sender: FDA-Public Use
  Company Number: None

PATIENT

DRUGS (1)
  1. LABETALOL [Suspect]
     Active Substance: LABETALOL\LABETALOL HYDROCHLORIDE
     Dosage: DOSAGE FORM: INJECTABLE  ADM ROUTE; INTRAVENOUS ONLY ?STRENGTH: 100 MG/20 ML  TYPE: MULTIDOSE VIAL  SIZE: 20 ML
     Route: 042

REACTIONS (1)
  - Product label issue [None]
